FAERS Safety Report 14569602 (Version 1)
Quarter: 2018Q1

REPORT INFORMATION
  Report Type: Spontaneous
  Country: US (occurrence: US)
  Receive Date: 20180224
  Receipt Date: 20180224
  Transmission Date: 20180509
  Serious: No
  Sender: FDA-Public Use
  Company Number: US-TEVA-2018-US-861478

PATIENT
  Sex: Female

DRUGS (3)
  1. LORAZEPAM. [Suspect]
     Active Substance: LORAZEPAM
     Indication: ANXIETY
     Dates: start: 2006
  2. LORAZEPAM. [Suspect]
     Active Substance: LORAZEPAM
     Indication: MYALGIA
     Dates: start: 2006
  3. LORAZEPAM. [Suspect]
     Active Substance: LORAZEPAM
     Indication: SLEEP DISORDER
     Route: 065
     Dates: start: 2006

REACTIONS (12)
  - Dry mouth [Unknown]
  - Paraesthesia oral [Unknown]
  - Wrong technique in product usage process [Unknown]
  - Nausea [Unknown]
  - Headache [Unknown]
  - Condition aggravated [Unknown]
  - Swelling face [Unknown]
  - Nasal dryness [Unknown]
  - Pruritus [Unknown]
  - Lip swelling [Unknown]
  - Hypoaesthesia [Unknown]
  - Malaise [Unknown]

NARRATIVE: CASE EVENT DATE: 2006
